FAERS Safety Report 7459592-0 (Version None)
Quarter: 2011Q2

REPORT INFORMATION
  Report Type: 
  Country: None (occurrence: None)
  Receive Date: 20110505
  Receipt Date: 20110420
  Transmission Date: 20111010
  Serious: Yes (Other)
  Sender: FDA-Public Use
  Company Number: US-JNJFOC-20110410638

PATIENT
  Sex: Female
  Weight: 47.63 kg

DRUGS (11)
  1. DURAGESIC [Suspect]
     Route: 062
  2. DURAGESIC [Suspect]
     Route: 062
  3. FENTANYL-100 [Suspect]
     Indication: PAIN
     Route: 062
  4. NEXIUM [Concomitant]
     Route: 048
  5. LASIX [Concomitant]
     Route: 048
  6. ULTRAM [Concomitant]
     Indication: PAIN
     Route: 048
  7. ALLEGRA [Concomitant]
     Route: 048
  8. DURAGESIC [Suspect]
     Route: 062
  9. OXYCODONE [Concomitant]
     Indication: PAIN
     Route: 048
  10. DURAGESIC [Suspect]
     Indication: PAIN
     Route: 062
  11. DURAGESIC [Suspect]
     Route: 062

REACTIONS (5)
  - APPLICATION SITE REACTION [None]
  - HYPERTHYROIDISM [None]
  - SCAB [None]
  - APPLICATION SITE EXFOLIATION [None]
  - ROTATOR CUFF SYNDROME [None]
